FAERS Safety Report 8495268-9 (Version None)
Quarter: 2012Q3

REPORT INFORMATION
  Report Type: 
  Country: None (occurrence: None)
  Receive Date: 20120709
  Receipt Date: 20120704
  Transmission Date: 20120928
  Serious: Yes (Life-Threatening, Hospitalization)
  Sender: FDA-Public Use
  Company Number: JP-ASTRAZENECA-2012SE45576

PATIENT
  Age: 55 Year
  Sex: Male

DRUGS (4)
  1. TENORMIN [Suspect]
     Dosage: 25MG AND 47 TABLETS (1175MG)
     Route: 048
  2. DOXAZOSIN MESYLATE [Concomitant]
     Dosage: 2MG 39 TABLETS (78MG)
     Route: 048
  3. OLMESARTAN MEDOXOMIL [Concomitant]
     Dosage: 20MG 47 TABLETS (940MG)
     Route: 048
  4. NIFEDIPINE [Concomitant]
     Dosage: 40 MG 42 TABLETS (1680MG)
     Route: 048

REACTIONS (3)
  - OBSESSIVE THOUGHTS [None]
  - SUICIDE ATTEMPT [None]
  - SHOCK [None]
